FAERS Safety Report 15132835 (Version 1)
Quarter: 2018Q3

REPORT INFORMATION
  Report Type: Report from Study
  Country: DE (occurrence: DE)
  Receive Date: 20180712
  Receipt Date: 20180712
  Transmission Date: 20181010
  Serious: Yes (Hospitalization, Other)
  Sender: FDA-Public Use
  Company Number: DE-TEVA-2018-DE-922822

PATIENT
  Age: 76 Year
  Sex: Female
  Weight: 60 kg

DRUGS (42)
  1. TRAMETINIB [Suspect]
     Active Substance: TRAMETINIB
     Indication: METASTATIC MALIGNANT MELANOMA
     Dosage: 2 MILLIGRAM DAILY;
     Route: 048
     Dates: start: 20171121, end: 20180217
  2. TRAMETINIB [Suspect]
     Active Substance: TRAMETINIB
     Dosage: 2 MILLIGRAM DAILY;
     Route: 048
     Dates: start: 20170803, end: 20171001
  3. TAFINLAR [Suspect]
     Active Substance: DABRAFENIB MESYLATE
     Dosage: 150 MILLIGRAM DAILY;
     Route: 048
     Dates: start: 20170803, end: 20170925
  4. TAFINLAR [Suspect]
     Active Substance: DABRAFENIB MESYLATE
     Dosage: 300 MILLIGRAM DAILY;
     Route: 048
     Dates: start: 20171121, end: 20180217
  5. TAFINLAR [Suspect]
     Active Substance: DABRAFENIB MESYLATE
     Dosage: 150 MILLIGRAM DAILY;
     Route: 048
     Dates: start: 20170928, end: 20171001
  6. TILIDINE [Concomitant]
     Active Substance: TILIDINE
     Indication: MALIGNANT MELANOMA
     Dosage: 50 MG, BID (50/4)
     Route: 048
     Dates: start: 20170802
  7. VITAMIN D3 [Concomitant]
     Active Substance: CHOLECALCIFEROL
     Indication: MALIGNANT MELANOMA
     Dosage: 400 IU (INTERNATIONAL UNIT) DAILY;
     Route: 048
  8. JONOSTERIL (CALCIUM ACETATE\MAGNESIUM ACETATE\POTASSIUM ACETATE\SODIUM ACETATE\SODIUM CHLORIDE) [Concomitant]
     Active Substance: CALCIUM ACETATE\MAGNESIUM ACETATE\POTASSIUM ACETATE\SODIUM ACETATE\SODIUM CHLORI
     Dosage: 500 ML DAILY;
     Route: 042
     Dates: start: 20180327, end: 20180327
  9. METOCLOPRAMIDE. [Concomitant]
     Active Substance: METOCLOPRAMIDE
     Indication: PRODUCT USED FOR UNKNOWN INDICATION
     Dosage: 20 MILLIGRAM DAILY;
     Route: 042
     Dates: start: 20180320, end: 20180322
  10. JONOSTERIL (CALCIUM ACETATE\MAGNESIUM ACETATE\POTASSIUM ACETATE\SODIUM ACETATE\SODIUM CHLORIDE) [Concomitant]
     Active Substance: CALCIUM ACETATE\MAGNESIUM ACETATE\POTASSIUM ACETATE\SODIUM ACETATE\SODIUM CHLORI
     Dosage: 2000 ML DAILY;
     Route: 042
     Dates: start: 20180320, end: 20180322
  11. TRAMETINIB [Suspect]
     Active Substance: TRAMETINIB
     Dosage: 2 MILLIGRAM DAILY;
     Route: 048
     Dates: start: 20170328, end: 20170630
  12. TRAMETINIB [Suspect]
     Active Substance: TRAMETINIB
     Dosage: 2 MILLIGRAM DAILY;
     Route: 048
     Dates: start: 20180228, end: 20180318
  13. FURESIS [Concomitant]
     Active Substance: FUROSEMIDE
     Indication: PRODUCT USED FOR UNKNOWN INDICATION
     Dosage: 40 MILLIGRAM DAILY;
     Route: 042
     Dates: start: 20180321, end: 20180322
  14. CALCIUM [Concomitant]
     Active Substance: CALCIUM
     Indication: MALIGNANT MELANOMA
     Dosage: 500 MILLIGRAM DAILY;
     Route: 048
  15. CIPROFLOXACIN. [Concomitant]
     Active Substance: CIPROFLOXACIN
     Indication: PRODUCT USED FOR UNKNOWN INDICATION
     Dosage: 100 MILLIGRAM DAILY;
     Route: 048
     Dates: start: 20171013, end: 20171018
  16. TAFINLAR [Suspect]
     Active Substance: DABRAFENIB MESYLATE
     Indication: METASTATIC MALIGNANT MELANOMA
     Dosage: 300 MILLIGRAM DAILY;
     Route: 048
     Dates: start: 20170328, end: 20170630
  17. JONOSTERIL (CALCIUM ACETATE\MAGNESIUM ACETATE\POTASSIUM ACETATE\SODIUM ACETATE\SODIUM CHLORIDE) [Concomitant]
     Active Substance: CALCIUM ACETATE\MAGNESIUM ACETATE\POTASSIUM ACETATE\SODIUM ACETATE\SODIUM CHLORI
     Indication: DIARRHOEA
     Dosage: 2000 ML DAILY;
     Route: 042
  18. RAMILICH [Concomitant]
     Active Substance: RAMIPRIL
     Indication: HYPERTENSION
     Dosage: 10 MILLIGRAM DAILY;
     Route: 048
  19. ZOMETA [Concomitant]
     Active Substance: ZOLEDRONIC ACID
     Indication: MALIGNANT MELANOMA
     Dosage: 4 MG, QMO
     Route: 042
     Dates: start: 20170404, end: 20180318
  20. FRAXIPARIN [Concomitant]
     Active Substance: NADROPARIN CALCIUM
     Indication: PRODUCT USED FOR UNKNOWN INDICATION
     Dosage: 2850 IU (INTERNATIONAL UNIT) DAILY;
     Route: 058
     Dates: start: 20170417, end: 20180424
  21. TRAMETINIB [Suspect]
     Active Substance: TRAMETINIB
     Dosage: 2  DAILY;
     Route: 048
     Dates: start: 20171006, end: 20171012
  22. TRAMETINIB [Suspect]
     Active Substance: TRAMETINIB
     Dosage: UNK
     Route: 048
     Dates: start: 20180424
  23. TAFINLAR [Suspect]
     Active Substance: DABRAFENIB MESYLATE
     Dosage: 300 MILLIGRAM DAILY;
     Route: 048
     Dates: start: 20180228, end: 20180318
  24. TAFINLAR [Suspect]
     Active Substance: DABRAFENIB MESYLATE
     Dosage: 150 MILLIGRAM DAILY;
     Route: 048
     Dates: start: 20171020, end: 20171109
  25. TAFINLAR [Suspect]
     Active Substance: DABRAFENIB MESYLATE
     Dosage: 300 MILLIGRAM DAILY;
     Route: 048
     Dates: start: 20180424
  26. NOVAMINSULFON [Concomitant]
     Active Substance: METAMIZOLE
     Indication: PRODUCT USED FOR UNKNOWN INDICATION
     Dosage: 2000 MILLIGRAM DAILY;
     Route: 042
     Dates: start: 20180320, end: 20180321
  27. JONOSTERIL (CALCIUM ACETATE\MAGNESIUM ACETATE\POTASSIUM ACETATE\SODIUM ACETATE\SODIUM CHLORIDE) [Concomitant]
     Active Substance: CALCIUM ACETATE\MAGNESIUM ACETATE\POTASSIUM ACETATE\SODIUM ACETATE\SODIUM CHLORI
     Dosage: 1000 ML DAILY; 1000 ML, QD
     Route: 042
     Dates: start: 20180417, end: 20180420
  28. JONOSTERIL (CALCIUM ACETATE\MAGNESIUM ACETATE\POTASSIUM ACETATE\SODIUM ACETATE\SODIUM CHLORIDE) [Concomitant]
     Active Substance: CALCIUM ACETATE\MAGNESIUM ACETATE\POTASSIUM ACETATE\SODIUM ACETATE\SODIUM CHLORI
     Dosage: 500 ML DAILY;
     Route: 042
     Dates: start: 20170709, end: 20170710
  29. ROCEPHIN [Concomitant]
     Active Substance: CEFTRIAXONE SODIUM
     Indication: PRODUCT USED FOR UNKNOWN INDICATION
     Dosage: 2 GRAM DAILY;
     Route: 042
     Dates: start: 20180321, end: 20180329
  30. JONOSTERIL (CALCIUM ACETATE\MAGNESIUM ACETATE\POTASSIUM ACETATE\SODIUM ACETATE\SODIUM CHLORIDE) [Concomitant]
     Active Substance: CALCIUM ACETATE\MAGNESIUM ACETATE\POTASSIUM ACETATE\SODIUM ACETATE\SODIUM CHLORI
     Indication: PRODUCT USED FOR UNKNOWN INDICATION
     Dosage: 1000 ML DAILY;
     Route: 042
     Dates: start: 20170703, end: 20170708
  31. PANTOPRAZOL [Concomitant]
     Active Substance: PANTOPRAZOLE SODIUM
     Indication: PRODUCT USED FOR UNKNOWN INDICATION
     Dosage: 20 MILLIGRAM DAILY;
     Route: 048
     Dates: start: 20180320
  32. HEPARIN [Concomitant]
     Active Substance: HEPARIN SODIUM
     Indication: MALIGNANT MELANOMA
     Dosage: 5000 DOSAGE FORMS DAILY;
     Route: 058
     Dates: start: 20170703, end: 20170703
  33. TRAMETINIB [Suspect]
     Active Substance: TRAMETINIB
     Dosage: 2 MILLIGRAM DAILY;
     Route: 048
     Dates: start: 20171020, end: 20171109
  34. HEPARIN [Suspect]
     Active Substance: HEPARIN SODIUM
     Dosage: 2 MILLIGRAM DAILY;
     Route: 048
     Dates: start: 20171006, end: 20171012
  35. TAFINLAR [Suspect]
     Active Substance: DABRAFENIB MESYLATE
     Dosage: 300 MILLIGRAM DAILY;
     Route: 048
     Dates: start: 20170926, end: 20170927
  36. CLAVULANIC ACID [Suspect]
     Active Substance: CLAVULANIC ACID
     Indication: PRODUCT USED FOR UNKNOWN INDICATION
     Route: 048
     Dates: start: 20180306, end: 20180320
  37. FERINJECT [Concomitant]
     Active Substance: FERRIC CARBOXYMALTOSE
     Indication: PRODUCT USED FOR UNKNOWN INDICATION
     Dosage: 50 MILLIGRAM DAILY;
     Route: 042
     Dates: start: 20171017, end: 20171017
  38. HEPARIN [Concomitant]
     Active Substance: HEPARIN SODIUM
     Dosage: 10000 DOSAGE FORMS DAILY;
     Route: 058
     Dates: start: 20170704, end: 20170801
  39. MCP [Concomitant]
     Active Substance: METOCLOPRAMIDE HYDROCHLORIDE
     Indication: MALIGNANT MELANOMA
     Dosage: 20 GTT, AS NEEDED UPTO TID
     Route: 048
     Dates: start: 20170424
  40. AMOXICILLIN. [Suspect]
     Active Substance: AMOXICILLIN
     Indication: PRODUCT USED FOR UNKNOWN INDICATION
     Dosage: 1750 MILLIGRAM DAILY;
     Route: 048
     Dates: start: 20180306, end: 20180320
  41. TAFINLAR [Suspect]
     Active Substance: DABRAFENIB MESYLATE
     Dosage: 150 MILLIGRAM DAILY;
     Route: 048
     Dates: start: 20171006, end: 20171012
  42. JONOSTERIL (CALCIUM ACETATE\MAGNESIUM ACETATE\POTASSIUM ACETATE\SODIUM ACETATE\SODIUM CHLORIDE) [Concomitant]
     Active Substance: CALCIUM ACETATE\MAGNESIUM ACETATE\POTASSIUM ACETATE\SODIUM ACETATE\SODIUM CHLORI
     Dosage: 1000 ML DAILY;
     Route: 042
     Dates: start: 20180323, end: 20180326

REACTIONS (27)
  - Haematuria [Not Recovered/Not Resolved]
  - Epistaxis [Unknown]
  - Anaemia [Recovered/Resolved with Sequelae]
  - Influenza like illness [Recovered/Resolved]
  - Acute kidney injury [Recovered/Resolved]
  - Hypokalaemia [Recovered/Resolved]
  - Acute kidney injury [Recovered/Resolved with Sequelae]
  - Hyponatraemia [Not Recovered/Not Resolved]
  - Pneumonia [Recovering/Resolving]
  - Leukopenia [Recovered/Resolved with Sequelae]
  - Nausea [Recovering/Resolving]
  - Hypocalcaemia [Recovered/Resolved]
  - Gamma-glutamyltransferase increased [Recovered/Resolved]
  - Dehydration [Recovered/Resolved]
  - Diarrhoea [Recovered/Resolved]
  - Vomiting [Recovered/Resolved]
  - Blood creatinine increased [Recovered/Resolved]
  - Rash maculo-papular [Recovering/Resolving]
  - Thrombocytopenia [Recovered/Resolved]
  - Hypoalbuminaemia [Not Recovered/Not Resolved]
  - Urinary tract infection [Recovered/Resolved]
  - Lymphopenia [Unknown]
  - Pyrexia [Unknown]
  - Aspartate aminotransferase increased [Recovered/Resolved]
  - Oedema peripheral [Unknown]
  - Blood creatine phosphokinase increased [Recovered/Resolved]
  - Alanine aminotransferase increased [Recovered/Resolved]

NARRATIVE: CASE EVENT DATE: 20170411
